FAERS Safety Report 6021606-2 (Version None)
Quarter: 2008Q4

REPORT INFORMATION
  Report Type: 
  Country: None (occurrence: None)
  Receive Date: 20081229
  Receipt Date: 20081223
  Transmission Date: 20090506
  Serious: Yes (Hospitalization)
  Sender: FDA-Public Use
  Company Number: FR-WYE-G02844208

PATIENT
  Sex: Male
  Weight: 88 kg

DRUGS (2)
  1. SIROLIMUS [Suspect]
     Route: 048
     Dates: start: 20080604
  2. SOLUPRED [Concomitant]
     Dosage: 5 MG TOTAL DAILY
     Route: 048

REACTIONS (2)
  - COUGH [None]
  - PYREXIA [None]
